FAERS Safety Report 6282108-1 (Version None)
Quarter: 2009Q3

REPORT INFORMATION
  Report Type: 
  Country: None (occurrence: None)
  Receive Date: 20090724
  Receipt Date: 20090218
  Transmission Date: 20100115
  Serious: No
  Sender: FDA-Public Use
  Company Number: US-KINGPHARMUSA00001-K200900173

PATIENT

DRUGS (5)
  1. SEPTRA [Suspect]
     Indication: HERPES ZOSTER
  2. METFORMIN HCL [Suspect]
     Indication: BLOOD GLUCOSE ABNORMAL
  3. GLIPIZIDE [Suspect]
     Indication: BLOOD GLUCOSE ABNORMAL
  4. ACYCLOVIR [Suspect]
     Indication: HERPES ZOSTER
  5. PREDNISONE [Suspect]
     Indication: HERPES ZOSTER

REACTIONS (1)
  - HYPOGLYCAEMIA [None]
